FAERS Safety Report 10086116 (Version 1)
Quarter: 2014Q2

REPORT INFORMATION
  Report Type: Spontaneous
  Country: FR (occurrence: FR)
  Receive Date: 20140418
  Receipt Date: 20140418
  Transmission Date: 20141212
  Serious: Yes (Hospitalization)
  Sender: FDA-Public Use
  Company Number: FR-ABBVIE-14P-056-1225614-00

PATIENT
  Age: 36 Year
  Sex: Female

DRUGS (5)
  1. NORVIR [Suspect]
     Indication: HIV INFECTION
     Route: 048
     Dates: start: 2008, end: 20140219
  2. ISONIAZIDE [Suspect]
     Indication: HIV INFECTION
     Route: 048
     Dates: start: 201306, end: 20140118
  3. REYATAZ [Suspect]
     Indication: HIV INFECTION
     Dates: start: 2008, end: 20140219
  4. TRUVADA [Suspect]
     Indication: HIV INFECTION
     Route: 048
     Dates: start: 2008
  5. ORELOX [Suspect]
     Indication: PRODUCT USED FOR UNKNOWN INDICATION
     Dates: start: 20140121, end: 20140126

REACTIONS (6)
  - Hepatocellular injury [Recovering/Resolving]
  - Chills [Unknown]
  - Headache [Unknown]
  - Asthenia [Unknown]
  - Viral infection [Unknown]
  - Autoimmune disorder [Unknown]
